FAERS Safety Report 9788412 (Version 4)
Quarter: 2014Q1

REPORT INFORMATION
  Report Type: Spontaneous
  Country: GB (occurrence: GB)
  Receive Date: 20131230
  Receipt Date: 20140131
  Transmission Date: 20141002
  Serious: Yes (Hospitalization)
  Sender: FDA-Public Use
  Company Number: PHFR2013GB006804

PATIENT
  Sex: Male

DRUGS (1)
  1. CLOZARIL [Suspect]
     Indication: SCHIZOPHRENIA
     Dosage: UNK
     Route: 048
     Dates: start: 20060313, end: 20131129

REACTIONS (4)
  - Pleurisy [Recovering/Resolving]
  - Lower respiratory tract infection [Recovering/Resolving]
  - Mental impairment [Recovering/Resolving]
  - Pneumonia [Recovering/Resolving]
